FAERS Safety Report 6140247-X (Version None)
Quarter: 2009Q2

REPORT INFORMATION
  Report Type: 
  Country: None (occurrence: None)
  Receive Date: 20090401
  Receipt Date: 20090324
  Transmission Date: 20091009
  Serious: Yes (Other)
  Sender: FDA-Public Use
  Company Number: US-ABBOTT-09P-163-0564673-00

PATIENT
  Sex: Female

DRUGS (1)
  1. HUMIRA [Suspect]
     Indication: CROHN'S DISEASE
     Dosage: ONCE
     Route: 058
     Dates: start: 20090323, end: 20090323

REACTIONS (4)
  - ANXIETY [None]
  - HEADACHE [None]
  - NAUSEA [None]
  - THROAT TIGHTNESS [None]
